FAERS Safety Report 23718115 (Version 1)
Quarter: 2024Q2

REPORT INFORMATION
  Report Type: Spontaneous
  Country: CA (occurrence: CA)
  Receive Date: 20240408
  Receipt Date: 20240408
  Transmission Date: 20240716
  Serious: Yes (Other)
  Sender: FDA-Public Use
  Company Number: CA-TEVA-VS-3179830

PATIENT
  Age: 8 Year
  Sex: Male
  Weight: 25 kg

DRUGS (3)
  1. ETOPOSIDE [Suspect]
     Active Substance: ETOPOSIDE
     Route: 065
  2. VINCRISTINE [Suspect]
     Active Substance: VINCRISTINE
     Dosage: DESCRIPTION: VINCRISTINE SULFATE INJECTION USP
     Route: 065
  3. IFOSFAMIDE [Suspect]
     Active Substance: IFOSFAMIDE
     Dosage: DESCRIPTION: IFOSFAMIDE FOR INJECTION, USP, DOSE FORM: POWDER FOR SOLUTION INTRAVENOUS
     Route: 065

REACTIONS (1)
  - Febrile neutropenia [Recovered/Resolved]
